FAERS Safety Report 20796887 (Version 2)
Quarter: 2022Q2

REPORT INFORMATION
  Report Type: Report from Study
  Country: BR (occurrence: None)
  Receive Date: 20220506
  Receipt Date: 20220526
  Transmission Date: 20220721
  Serious: Yes (Hospitalization)
  Sender: FDA-Public Use
  Company Number: BR-Merck Healthcare KGaA-9263753

PATIENT
  Age: 37 Year
  Sex: Female

DRUGS (3)
  1. INTERFERON BETA-1A [Suspect]
     Active Substance: INTERFERON BETA-1A
     Indication: Multiple sclerosis
     Route: 058
     Dates: start: 20190403
  2. REBIF [Suspect]
     Active Substance: INTERFERON BETA-1A
     Indication: Multiple sclerosis
     Route: 058
     Dates: start: 20130215, end: 20190401
  3. DIPYRONE [Concomitant]
     Active Substance: DIPYRONE
     Indication: Product used for unknown indication
     Dosage: IN DROPS IF NECESSARY.

REACTIONS (8)
  - Constipation [Recovering/Resolving]
  - Abdominal discomfort [Recovered/Resolved]
  - Gastrointestinal stoma complication [Not Recovered/Not Resolved]
  - Stoma site extravasation [Unknown]
  - Faecaloma [Unknown]
  - Procedural pain [Unknown]
  - Abdominal distension [Unknown]
  - Stoma site irritation [Not Recovered/Not Resolved]

NARRATIVE: CASE EVENT DATE: 20210701
